FAERS Safety Report 12905492 (Version 1)
Quarter: 2016Q4

REPORT INFORMATION
  Report Type: Spontaneous
  Country: JP (occurrence: JP)
  Receive Date: 20161103
  Receipt Date: 20161103
  Transmission Date: 20170207
  Serious: Yes (Hospitalization)
  Sender: FDA-Public Use
  Company Number: JP-ROCHE-1831120

PATIENT
  Age: 55 Year
  Sex: Female
  Weight: 48 kg

DRUGS (7)
  1. ACTEMRA [Suspect]
     Active Substance: TOCILIZUMAB
     Indication: STILL^S DISEASE ADULT ONSET
     Route: 041
     Dates: start: 20160722, end: 20160722
  2. RESPLEN [Suspect]
     Active Substance: EPRAZINONE
     Indication: PRODUCT USED FOR UNKNOWN INDICATION
     Route: 048
     Dates: start: 20160711, end: 20160727
  3. LUNESTA [Suspect]
     Active Substance: ESZOPICLONE
     Indication: INSOMNIA
     Route: 048
     Dates: start: 20160709, end: 20160803
  4. FLORID [Suspect]
     Active Substance: MICONAZOLE
     Indication: ORAL CANDIDIASIS
     Route: 048
     Dates: start: 20160719, end: 20160725
  5. PREDNISOLONE. [Concomitant]
     Active Substance: PREDNISOLONE
     Indication: STILL^S DISEASE ADULT ONSET
     Dosage: IN THE MORNING:20MG, IN THE DAYTIME:15MG, IN THE NIGHT:15MG
     Route: 048
     Dates: start: 20160711
  6. CALONAL [Suspect]
     Active Substance: ACETAMINOPHEN
     Indication: STILL^S DISEASE ADULT ONSET
     Route: 048
     Dates: start: 20160707, end: 20160727
  7. LANSOPRAZOLE. [Suspect]
     Active Substance: LANSOPRAZOLE
     Indication: PROPHYLAXIS
     Route: 048
     Dates: start: 20160709, end: 20160727

REACTIONS (7)
  - Lymphocytosis [Unknown]
  - Alanine aminotransferase increased [Recovered/Resolved]
  - Aspartate aminotransferase increased [Recovered/Resolved]
  - Off label use [Unknown]
  - Platelet count decreased [Recovering/Resolving]
  - Gamma-glutamyltransferase increased [Unknown]
  - Blood bilirubin increased [Recovering/Resolving]

NARRATIVE: CASE EVENT DATE: 20160725
